FAERS Safety Report 14562361 (Version 2)
Quarter: 2018Q1

REPORT INFORMATION
  Report Type: Report from Study
  Country: JP (occurrence: JP)
  Receive Date: 20180222
  Receipt Date: 20180323
  Transmission Date: 20180509
  Serious: Yes (Hospitalization, Other)
  Sender: FDA-Public Use
  Company Number: JP-EISAI MEDICAL RESEARCH-EC-2018-035273

PATIENT
  Age: 63 Year
  Sex: Male
  Weight: 77 kg

DRUGS (10)
  1. TAKECAB [Concomitant]
     Active Substance: VONOPRAZAN FUMURATE
  2. RISPERDAL [Concomitant]
     Active Substance: RISPERIDONE
  3. CYLOCIDE [Concomitant]
     Active Substance: CYTARABINE
  4. E KEPPRA [Concomitant]
     Active Substance: LEVETIRACETAM
  5. BELSOMRA [Concomitant]
     Active Substance: SUVOREXANT
  6. FYCOMPA [Suspect]
     Active Substance: PERAMPANEL
     Indication: PARTIAL SEIZURES
     Route: 048
     Dates: start: 20170718
  7. REFLEX [Concomitant]
     Active Substance: MIRTAZAPINE
  8. LIXIANA [Concomitant]
     Active Substance: EDOXABAN TOSYLATE
  9. PREDNISOLONE. [Concomitant]
     Active Substance: PREDNISOLONE
  10. METHOTREXATE. [Concomitant]
     Active Substance: METHOTREXATE

REACTIONS (4)
  - Metastases to meninges [Recovering/Resolving]
  - Brain oedema [Not Recovered/Not Resolved]
  - Delirium [Recovered/Resolved]
  - Deep vein thrombosis [Recovered/Resolved]

NARRATIVE: CASE EVENT DATE: 20170718
